FAERS Safety Report 20601433 (Version 3)
Quarter: 2022Q1

REPORT INFORMATION
  Report Type: Report from Study
  Country: IT (occurrence: IT)
  Receive Date: 20220316
  Receipt Date: 20220325
  Transmission Date: 20220423
  Serious: Yes (Hospitalization)
  Sender: FDA-Public Use
  Company Number: IT-002147023-NVSC2022IT058317

PATIENT
  Age: 59 Year
  Sex: Female
  Weight: 57 kg

DRUGS (3)
  1. ERENUMAB [Suspect]
     Active Substance: ERENUMAB
     Indication: Migraine
     Dosage: 140 MILLIGRAM
     Route: 058
     Dates: start: 20210217
  2. VENLAFAXINE [Concomitant]
     Active Substance: VENLAFAXINE HYDROCHLORIDE
     Indication: Depression
     Dosage: 75 MILLIGRAM
     Route: 065
     Dates: start: 2016
  3. BROMAZEPAM [Concomitant]
     Active Substance: BROMAZEPAM
     Indication: Anxiety
     Dosage: 3 MILLIGRAM
     Route: 065
     Dates: start: 2017

REACTIONS (2)
  - Pain [Unknown]
  - Morton^s neuralgia [Recovered/Resolved]

NARRATIVE: CASE EVENT DATE: 20210801
